FAERS Safety Report 25735823 (Version 1)
Quarter: 2025Q3

REPORT INFORMATION
  Report Type: Spontaneous
  Country: US (occurrence: US)
  Receive Date: 20250828
  Receipt Date: 20250828
  Transmission Date: 20251020
  Serious: No
  Sender: PFIZER
  Company Number: US-PFIZER INC-202300270990

PATIENT
  Age: 21 Year
  Sex: Female

DRUGS (3)
  1. CIBINQO [Suspect]
     Active Substance: ABROCITINIB
     Indication: Neurodermatitis
     Dates: start: 20240119, end: 20250729
  2. CIBINQO [Suspect]
     Active Substance: ABROCITINIB
     Indication: Dermatitis atopic
  3. CIBINQO [Suspect]
     Active Substance: ABROCITINIB
     Indication: Eczema

REACTIONS (1)
  - Nasopharyngitis [Unknown]
